FAERS Safety Report 7665697 (Version 5)
Quarter: 2014Q2

REPORT INFORMATION
  Report Type: Spontaneous
  Country: US (occurrence: US)
  Receive Date: 20101112
  Receipt Date: 20140402
  Transmission Date: 20141212
  Serious: Yes (Death, Hospitalization, Other)
  Sender: FDA-Public Use
  Company Number: US-PFIZER INC-2010139833

PATIENT
  Age: 68 Year
  Sex: Male

DRUGS (48)
  1. DILANTIN [Suspect]
     Indication: CONVULSION
     Dosage: 300 MG, 1X/DAY (THREE 100 MG CAPSULES EVERY NIGHT)
     Route: 048
     Dates: start: 20081119, end: 20081221
  2. DILANTIN [Suspect]
     Dosage: 100 MG AT BED TIME, UNK
     Route: 048
     Dates: start: 20081122
  3. DILANTIN [Suspect]
     Dosage: 300 MG, AT BED TIME
     Route: 048
     Dates: start: 20081126
  4. THIAMINE [Concomitant]
     Dosage: 100 MG, 1X/DAY
     Route: 042
     Dates: start: 20081119, end: 20081121
  5. LORAZEPAM [Concomitant]
     Dosage: UNK
     Route: 042
     Dates: start: 20081119, end: 20081123
  6. FOSPHENYTOIN [Concomitant]
     Dosage: UNK
     Route: 042
     Dates: start: 20081121, end: 20081122
  7. DIGOXIN [Concomitant]
     Dosage: 0.125 MG, UNK
     Route: 048
     Dates: start: 20081121, end: 20081126
  8. METOPROLOL [Concomitant]
     Dosage: 50 MG, UNK
     Route: 048
     Dates: start: 20081123, end: 20081126
  9. ENALAPRIL [Concomitant]
     Dosage: 20 MG, UNK
     Route: 048
     Dates: start: 20081124, end: 20081126
  10. DIPHENHYDRAMINE [Concomitant]
     Dosage: UNK
     Route: 048
     Dates: start: 20081125
  11. PIOGLITAZONE [Concomitant]
     Dosage: 30 MG, UNK
     Route: 048
     Dates: start: 20081125, end: 20081126
  12. ISOSORBIDE [Concomitant]
     Dosage: 30 MG, UNK
     Route: 048
     Dates: start: 20081125, end: 20081126
  13. MULTIVITAMINS [Concomitant]
     Dosage: UNK
     Route: 048
     Dates: start: 20081126
  14. DULCOLAX [Concomitant]
     Dosage: 10 MG, UNK
     Route: 054
     Dates: start: 20081126
  15. EUCERIN [Concomitant]
     Indication: DRY SKIN
     Dosage: UNK
     Dates: start: 20081126
  16. NITRO PATCH [Concomitant]
     Dosage: 0.4 MG, UNK
     Route: 061
     Dates: start: 20081126
  17. THORAZINE [Concomitant]
     Indication: HICCUPS
     Dosage: UNK, FOR EVERY SIX HOURS
     Dates: start: 20081127
  18. TYLENOL [Concomitant]
     Indication: PAIN
     Dosage: 325 MG, 4X/DAY (EVERY 6 HOURS)
     Route: 048
     Dates: start: 20081123, end: 20081223
  19. TYLENOL [Concomitant]
     Dosage: 650 MG, 4X/DAY
     Dates: start: 20081126
  20. ZOCOR [Concomitant]
     Dosage: 40 MG, 1X/DAY, EVERY NIGHT
     Route: 048
     Dates: start: 20081119, end: 20081221
  21. LOPRESSOR [Concomitant]
     Dosage: 50 MG, 3X/DAY (EVERY EIGHT HOURS)
     Route: 048
     Dates: start: 20081119, end: 20081222
  22. NORVASC [Concomitant]
     Dosage: 5 MG, 1X/DAY
     Route: 048
     Dates: start: 20081202
  23. VASOTEC [Concomitant]
     Dosage: 20 MG, 2X/DAY
     Route: 048
     Dates: start: 20081119, end: 20081223
  24. VASOTEC [Concomitant]
     Dosage: 10 MG, 2X/DAY
     Route: 048
     Dates: start: 20081122, end: 20081223
  25. LISINOPRIL [Concomitant]
     Dosage: 20 MG, 1X/DAY AT BED TIME
     Dates: start: 20081119
  26. PHOSLO [Concomitant]
     Dosage: 4 DF, 3X/DAY (WITH MEALS)
     Route: 048
     Dates: start: 20081119
  27. PHOSLO [Concomitant]
     Dosage: 667 MG, 3X/DAY
     Route: 048
     Dates: start: 20081126
  28. NORMODYNE [Concomitant]
     Dosage: 10 MG, 4X/DAY (EVERY 6 HOURS)
     Route: 042
     Dates: start: 20081119, end: 20081121
  29. CEREBYX [Concomitant]
     Dosage: 300MG/6 ML, AT BEDTIME
     Route: 042
     Dates: start: 20081119, end: 20081122
  30. ZOSYN [Concomitant]
     Dosage: 2.25 G, 2X/DAY (EVERY 12 HOURS)
     Route: 042
     Dates: start: 20081119, end: 20081122
  31. ZOSYN [Concomitant]
     Dosage: 0.75 G, AS NEEDED
     Route: 042
     Dates: start: 20081120, end: 20081121
  32. ZOSYN [Concomitant]
     Dosage: 0.75 G, EVERY MONDAY, WEDNESDAY AND FRIDAY
     Route: 042
     Dates: start: 20081121, end: 20081122
  33. ATIVAN [Concomitant]
     Dosage: 2 MG, AS NEEDED
     Route: 042
     Dates: start: 20081119, end: 20081123
  34. NEPHRO-VITE [Concomitant]
     Dosage: 1 DF, 1X/DAY AT MORNING TIMES
     Route: 048
     Dates: start: 20081119
  35. ACTOS [Concomitant]
     Dosage: 30 MG, 1X/DAY, EVERY MORNING
     Route: 048
     Dates: start: 20081119, end: 20081126
  36. ACTOS [Concomitant]
     Dosage: 45 MG, 1X/DAY
     Route: 048
     Dates: start: 20081130
  37. IMDUR [Concomitant]
     Dosage: 30 MG, 2X/DAY
     Route: 048
     Dates: start: 20081119, end: 20081126
  38. NITRO-DUR [Concomitant]
     Dosage: 10 MG, 1X/DAY
     Route: 062
     Dates: start: 20081119
  39. NITRO-DUR [Concomitant]
     Dosage: 0.4 MG, 1X/DAY (IN THE MORNING)
     Route: 061
     Dates: start: 20081119, end: 20081219
  40. NOVOLIN R [Concomitant]
     Dosage: 100 UNITS/ML ONCE DAILY
     Route: 058
     Dates: start: 20081119, end: 20081222
  41. LOPRESSOR [Concomitant]
     Dosage: 5MG/5ML, EVERY 4 HOURS
     Route: 042
     Dates: start: 20081121, end: 20081121
  42. VASOTEC [Concomitant]
     Dosage: 1.25 MG, 2X/DAY (EVERY 12 HOURS )
     Route: 042
     Dates: start: 20081119, end: 20081223
  43. LANOXIN [Concomitant]
     Dosage: 0.125 MG, 1X/DAY
     Route: 048
     Dates: start: 20081119, end: 20081123
  44. LANOXIN [Concomitant]
     Dosage: 0.125 MG, EVERY MONDAY, WEDNESDAY AND FRIDAY
     Route: 048
     Dates: start: 20081124, end: 20081222
  45. LANOXIN [Concomitant]
     Dosage: 0.125 MG/0.5 ML, ONCE DAILY
     Route: 042
     Dates: start: 20081121, end: 20081123
  46. APRESOLINE [Concomitant]
     Dosage: 10MG/0.5ML EVERY 4 HOURS
     Route: 042
     Dates: start: 20081123, end: 20081223
  47. BEROCCA [Concomitant]
     Dosage: 1 DF, 1X/DAY (ONE TABLET DAILY)
     Route: 048
     Dates: start: 20081125, end: 20081126
  48. CLONIDINE [Concomitant]
     Dosage: 0.1 MG, 1X/DAY (AT BED TIME)
     Route: 048
     Dates: start: 20081126

REACTIONS (1)
  - Stevens-Johnson syndrome [Fatal]
